FAERS Safety Report 21422108 (Version 1)
Quarter: 2022Q4

REPORT INFORMATION
  Report Type: Spontaneous
  Country: US (occurrence: US)
  Receive Date: 20221007
  Receipt Date: 20221007
  Transmission Date: 20230112
  Serious: Yes (Other)
  Sender: FDA-Public Use
  Company Number: US-SA-SAC20221006001256

PATIENT

DRUGS (1)
  1. ZANTAC [Suspect]
     Active Substance: RANITIDINE HYDROCHLORIDE
     Dosage: OVER THE COUNTER ZANTAC FROM APPROXIMATELY 2004 TO 2012
     Route: 048
     Dates: start: 2004, end: 2012

REACTIONS (2)
  - Colorectal cancer [Unknown]
  - Renal cancer [Unknown]
